FAERS Safety Report 21573392 (Version 1)
Quarter: 2022Q4

REPORT INFORMATION
  Report Type: Spontaneous
  Country: US (occurrence: None)
  Receive Date: 20221109
  Receipt Date: 20221109
  Transmission Date: 20230113
  Serious: Yes (Hospitalization)
  Sender: FDA-Public Use
  Company Number: None

PATIENT
  Age: 79 Year
  Sex: Male
  Weight: 83.25 kg

DRUGS (12)
  1. LINEZOLID [Suspect]
     Active Substance: LINEZOLID
     Indication: Osteomyelitis
     Dosage: FREQUENCY : TWICE A DAY;?
     Route: 041
     Dates: start: 20221020, end: 20221103
  2. ERTAPENEM [Concomitant]
     Active Substance: ERTAPENEM
     Dates: start: 20221025
  3. MEROPENEM [Concomitant]
     Active Substance: MEROPENEM
     Dates: start: 20221024, end: 20221025
  4. ASPIRIN [Concomitant]
     Active Substance: ASPIRIN
  5. EZETIMIBE [Concomitant]
     Active Substance: EZETIMIBE
  6. docusate na 100 mg [Concomitant]
  7. EMPAGLIFLOZIN [Concomitant]
     Active Substance: EMPAGLIFLOZIN
     Dates: start: 20221020
  8. AMLODIPINE [Concomitant]
     Active Substance: AMLODIPINE BESYLATE
  9. ALLOPURINOL [Concomitant]
     Active Substance: ALLOPURINOL
  10. VITAMIN D3 [Concomitant]
     Active Substance: CHOLECALCIFEROL
  11. miralax daily [Concomitant]
  12. INSULIN GLARGINE [Concomitant]
     Active Substance: INSULIN GLARGINE

REACTIONS (6)
  - Confusional state [None]
  - Hallucination [None]
  - Mental disorder [None]
  - Delirium [None]
  - Speech disorder [None]
  - Diabetic foot [None]

NARRATIVE: CASE EVENT DATE: 20221102
